FAERS Safety Report 15643308 (Version 1)
Quarter: 2018Q4

REPORT INFORMATION
  Report Type: Spontaneous
  Country: US (occurrence: US)
  Receive Date: 20181121
  Receipt Date: 20181121
  Transmission Date: 20190205
  Serious: Yes (Hospitalization)
  Sender: FDA-Public Use
  Company Number: US-HORIZON-PEN-1100-2018

PATIENT
  Age: 60 Year
  Sex: Female

DRUGS (1)
  1. PENNSAID [Suspect]
     Active Substance: DICLOFENAC SODIUM
     Indication: ARTHRALGIA
     Dosage: 2 PUMPS BID TO EACH KNEE

REACTIONS (5)
  - Joint surgery [Unknown]
  - Arthralgia [Unknown]
  - Device defective [Unknown]
  - Therapy cessation [Unknown]
  - Joint injury [Unknown]

NARRATIVE: CASE EVENT DATE: 201807
